FAERS Safety Report 24557373 (Version 2)
Quarter: 2025Q2

REPORT INFORMATION
  Report Type: Report from Study
  Country: DE (occurrence: DE)
  Receive Date: 20241028
  Receipt Date: 20250421
  Transmission Date: 20250717
  Serious: Yes (Death, Life-Threatening, Hospitalization, Other)
  Sender: MYLAN
  Company Number: DE-002147023-NVSC2021DE136671

PATIENT
  Sex: Female

DRUGS (132)
  1. METHOTREXATE [Suspect]
     Active Substance: METHOTREXATE
     Indication: Product used for unknown indication
  2. METHOTREXATE [Suspect]
     Active Substance: METHOTREXATE
  3. METHOTREXATE [Suspect]
     Active Substance: METHOTREXATE
     Route: 065
  4. METHOTREXATE [Suspect]
     Active Substance: METHOTREXATE
     Route: 065
  5. METHOTREXATE [Suspect]
     Active Substance: METHOTREXATE
  6. METHOTREXATE [Suspect]
     Active Substance: METHOTREXATE
  7. METHOTREXATE [Suspect]
     Active Substance: METHOTREXATE
     Route: 065
  8. METHOTREXATE [Suspect]
     Active Substance: METHOTREXATE
     Route: 065
  9. METHOTREXATE [Suspect]
     Active Substance: METHOTREXATE
  10. METHOTREXATE [Suspect]
     Active Substance: METHOTREXATE
  11. METHOTREXATE [Suspect]
     Active Substance: METHOTREXATE
     Route: 065
  12. METHOTREXATE [Suspect]
     Active Substance: METHOTREXATE
     Route: 065
  13. METHOTREXATE [Suspect]
     Active Substance: METHOTREXATE
  14. METHOTREXATE [Suspect]
     Active Substance: METHOTREXATE
  15. METHOTREXATE [Suspect]
     Active Substance: METHOTREXATE
     Route: 065
  16. METHOTREXATE [Suspect]
     Active Substance: METHOTREXATE
     Route: 065
  17. METHOTREXATE [Suspect]
     Active Substance: METHOTREXATE
     Dosage: 7.5 MILLIGRAM, QW
     Dates: end: 202402
  18. METHOTREXATE [Suspect]
     Active Substance: METHOTREXATE
     Dosage: 7.5 MILLIGRAM, QW
     Route: 065
     Dates: end: 202402
  19. METHOTREXATE [Suspect]
     Active Substance: METHOTREXATE
     Dosage: 7.5 MILLIGRAM, QW
     Dates: end: 202402
  20. METHOTREXATE [Suspect]
     Active Substance: METHOTREXATE
     Dosage: 7.5 MILLIGRAM, QW
     Route: 065
     Dates: end: 202402
  21. ERELZI [Suspect]
     Active Substance: ETANERCEPT-SZZS
     Indication: Product used for unknown indication
     Dosage: 50 MILLIGRAM, QW
     Route: 065
  22. ERELZI [Suspect]
     Active Substance: ETANERCEPT-SZZS
     Dosage: 50 MILLIGRAM, QW
  23. ERELZI [Suspect]
     Active Substance: ETANERCEPT-SZZS
     Dosage: 50 MILLIGRAM, QW
  24. ERELZI [Suspect]
     Active Substance: ETANERCEPT-SZZS
     Dosage: 50 MILLIGRAM, QW
     Route: 065
  25. ERELZI [Suspect]
     Active Substance: ETANERCEPT-SZZS
     Route: 065
  26. ERELZI [Suspect]
     Active Substance: ETANERCEPT-SZZS
  27. ERELZI [Suspect]
     Active Substance: ETANERCEPT-SZZS
  28. ERELZI [Suspect]
     Active Substance: ETANERCEPT-SZZS
     Route: 065
  29. ERELZI [Suspect]
     Active Substance: ETANERCEPT-SZZS
  30. ERELZI [Suspect]
     Active Substance: ETANERCEPT-SZZS
  31. ERELZI [Suspect]
     Active Substance: ETANERCEPT-SZZS
     Route: 065
  32. ERELZI [Suspect]
     Active Substance: ETANERCEPT-SZZS
     Route: 065
  33. ERELZI [Suspect]
     Active Substance: ETANERCEPT-SZZS
  34. ERELZI [Suspect]
     Active Substance: ETANERCEPT-SZZS
     Route: 065
  35. ERELZI [Suspect]
     Active Substance: ETANERCEPT-SZZS
     Route: 065
  36. ERELZI [Suspect]
     Active Substance: ETANERCEPT-SZZS
  37. ERELZI [Suspect]
     Active Substance: ETANERCEPT-SZZS
  38. ERELZI [Suspect]
     Active Substance: ETANERCEPT-SZZS
     Route: 065
  39. ERELZI [Suspect]
     Active Substance: ETANERCEPT-SZZS
     Route: 065
  40. ERELZI [Suspect]
     Active Substance: ETANERCEPT-SZZS
  41. ERELZI [Suspect]
     Active Substance: ETANERCEPT-SZZS
  42. ERELZI [Suspect]
     Active Substance: ETANERCEPT-SZZS
     Route: 065
  43. ERELZI [Suspect]
     Active Substance: ETANERCEPT-SZZS
  44. ERELZI [Suspect]
     Active Substance: ETANERCEPT-SZZS
     Route: 065
  45. ERELZI [Suspect]
     Active Substance: ETANERCEPT-SZZS
  46. ERELZI [Suspect]
     Active Substance: ETANERCEPT-SZZS
  47. ERELZI [Suspect]
     Active Substance: ETANERCEPT-SZZS
     Route: 065
  48. ERELZI [Suspect]
     Active Substance: ETANERCEPT-SZZS
     Route: 065
  49. ERELZI [Suspect]
     Active Substance: ETANERCEPT-SZZS
     Route: 065
  50. ERELZI [Suspect]
     Active Substance: ETANERCEPT-SZZS
     Route: 065
  51. ERELZI [Suspect]
     Active Substance: ETANERCEPT-SZZS
  52. ERELZI [Suspect]
     Active Substance: ETANERCEPT-SZZS
  53. ERELZI [Suspect]
     Active Substance: ETANERCEPT-SZZS
     Dosage: 50 MILLIGRAM, Q2W (EVERY 2 WEEKS)
     Dates: end: 20240215
  54. ERELZI [Suspect]
     Active Substance: ETANERCEPT-SZZS
     Dosage: 50 MILLIGRAM, Q2W (EVERY 2 WEEKS)
     Route: 065
     Dates: end: 20240215
  55. ERELZI [Suspect]
     Active Substance: ETANERCEPT-SZZS
     Dosage: 50 MILLIGRAM, Q2W (EVERY 2 WEEKS)
     Dates: end: 20240215
  56. ERELZI [Suspect]
     Active Substance: ETANERCEPT-SZZS
     Dosage: 50 MILLIGRAM, Q2W (EVERY 2 WEEKS)
     Route: 065
     Dates: end: 20240215
  57. ETANERCEPT [Suspect]
     Active Substance: ETANERCEPT
     Indication: Product used for unknown indication
  58. ETANERCEPT [Suspect]
     Active Substance: ETANERCEPT
     Route: 065
  59. ETANERCEPT [Suspect]
     Active Substance: ETANERCEPT
     Route: 065
  60. ETANERCEPT [Suspect]
     Active Substance: ETANERCEPT
  61. ENBREL [Concomitant]
     Active Substance: ETANERCEPT
     Indication: Product used for unknown indication
  62. ENBREL [Concomitant]
     Active Substance: ETANERCEPT
  63. ENBREL [Concomitant]
     Active Substance: ETANERCEPT
     Route: 065
  64. ENBREL [Concomitant]
     Active Substance: ETANERCEPT
     Route: 065
  65. ENBREL [Concomitant]
     Active Substance: ETANERCEPT
  66. ENBREL [Concomitant]
     Active Substance: ETANERCEPT
  67. ENBREL [Concomitant]
     Active Substance: ETANERCEPT
     Route: 065
  68. ENBREL [Concomitant]
     Active Substance: ETANERCEPT
     Route: 065
  69. ENBREL [Concomitant]
     Active Substance: ETANERCEPT
  70. ENBREL [Concomitant]
     Active Substance: ETANERCEPT
     Route: 065
  71. ENBREL [Concomitant]
     Active Substance: ETANERCEPT
  72. ENBREL [Concomitant]
     Active Substance: ETANERCEPT
     Route: 065
  73. PANTOPRAZOLE SODIUM [Concomitant]
     Active Substance: PANTOPRAZOLE SODIUM
     Indication: Product used for unknown indication
  74. PANTOPRAZOLE SODIUM [Concomitant]
     Active Substance: PANTOPRAZOLE SODIUM
     Route: 065
  75. PANTOPRAZOLE SODIUM [Concomitant]
     Active Substance: PANTOPRAZOLE SODIUM
     Route: 065
  76. PANTOPRAZOLE SODIUM [Concomitant]
     Active Substance: PANTOPRAZOLE SODIUM
  77. ASPIRIN [Concomitant]
     Active Substance: ASPIRIN
     Indication: Product used for unknown indication
  78. ASPIRIN [Concomitant]
     Active Substance: ASPIRIN
     Route: 065
  79. ASPIRIN [Concomitant]
     Active Substance: ASPIRIN
     Route: 065
  80. ASPIRIN [Concomitant]
     Active Substance: ASPIRIN
  81. FOLIC ACID [Concomitant]
     Active Substance: FOLIC ACID
     Indication: Product used for unknown indication
  82. FOLIC ACID [Concomitant]
     Active Substance: FOLIC ACID
     Route: 065
  83. FOLIC ACID [Concomitant]
     Active Substance: FOLIC ACID
     Route: 065
  84. FOLIC ACID [Concomitant]
     Active Substance: FOLIC ACID
  85. HYDROCHLOROTHIAZIDE [Concomitant]
     Active Substance: HYDROCHLOROTHIAZIDE
     Indication: Product used for unknown indication
  86. HYDROCHLOROTHIAZIDE [Concomitant]
     Active Substance: HYDROCHLOROTHIAZIDE
     Route: 065
  87. HYDROCHLOROTHIAZIDE [Concomitant]
     Active Substance: HYDROCHLOROTHIAZIDE
     Route: 065
  88. HYDROCHLOROTHIAZIDE [Concomitant]
     Active Substance: HYDROCHLOROTHIAZIDE
  89. BISOPROLOL [Concomitant]
     Active Substance: BISOPROLOL
     Indication: Product used for unknown indication
  90. BISOPROLOL [Concomitant]
     Active Substance: BISOPROLOL
     Route: 065
  91. BISOPROLOL [Concomitant]
     Active Substance: BISOPROLOL
     Route: 065
  92. BISOPROLOL [Concomitant]
     Active Substance: BISOPROLOL
  93. LERCANIDIPINE [Concomitant]
     Active Substance: LERCANIDIPINE
     Indication: Product used for unknown indication
  94. LERCANIDIPINE [Concomitant]
     Active Substance: LERCANIDIPINE
     Route: 065
  95. LERCANIDIPINE [Concomitant]
     Active Substance: LERCANIDIPINE
     Route: 065
  96. LERCANIDIPINE [Concomitant]
     Active Substance: LERCANIDIPINE
  97. RAMIPRIL [Concomitant]
     Active Substance: RAMIPRIL
     Indication: Product used for unknown indication
  98. RAMIPRIL [Concomitant]
     Active Substance: RAMIPRIL
     Route: 065
  99. RAMIPRIL [Concomitant]
     Active Substance: RAMIPRIL
     Route: 065
  100. RAMIPRIL [Concomitant]
     Active Substance: RAMIPRIL
  101. PREDNISOLONE [Concomitant]
     Active Substance: PREDNISOLONE
     Indication: Product used for unknown indication
  102. PREDNISOLONE [Concomitant]
     Active Substance: PREDNISOLONE
     Route: 065
  103. PREDNISOLONE [Concomitant]
     Active Substance: PREDNISOLONE
     Route: 065
  104. PREDNISOLONE [Concomitant]
     Active Substance: PREDNISOLONE
  105. METHIMAZOLE [Concomitant]
     Active Substance: METHIMAZOLE
     Indication: Product used for unknown indication
  106. METHIMAZOLE [Concomitant]
     Active Substance: METHIMAZOLE
     Route: 065
  107. METHIMAZOLE [Concomitant]
     Active Substance: METHIMAZOLE
     Route: 065
  108. METHIMAZOLE [Concomitant]
     Active Substance: METHIMAZOLE
  109. LAMIVUDINE [Concomitant]
     Active Substance: LAMIVUDINE
     Indication: Product used for unknown indication
  110. LAMIVUDINE [Concomitant]
     Active Substance: LAMIVUDINE
     Route: 065
  111. LAMIVUDINE [Concomitant]
     Active Substance: LAMIVUDINE
     Route: 065
  112. LAMIVUDINE [Concomitant]
     Active Substance: LAMIVUDINE
  113. NALOXONE HYDROCHLORIDE\TILIDINE HYDROCHLORIDE [Concomitant]
     Active Substance: NALOXONE HYDROCHLORIDE\TILIDINE HYDROCHLORIDE
     Indication: Product used for unknown indication
  114. NALOXONE HYDROCHLORIDE\TILIDINE HYDROCHLORIDE [Concomitant]
     Active Substance: NALOXONE HYDROCHLORIDE\TILIDINE HYDROCHLORIDE
     Route: 065
  115. NALOXONE HYDROCHLORIDE\TILIDINE HYDROCHLORIDE [Concomitant]
     Active Substance: NALOXONE HYDROCHLORIDE\TILIDINE HYDROCHLORIDE
     Route: 065
  116. NALOXONE HYDROCHLORIDE\TILIDINE HYDROCHLORIDE [Concomitant]
     Active Substance: NALOXONE HYDROCHLORIDE\TILIDINE HYDROCHLORIDE
  117. ZOPICLONE [Concomitant]
     Active Substance: ZOPICLONE
     Indication: Product used for unknown indication
  118. ZOPICLONE [Concomitant]
     Active Substance: ZOPICLONE
     Route: 065
  119. ZOPICLONE [Concomitant]
     Active Substance: ZOPICLONE
     Route: 065
  120. ZOPICLONE [Concomitant]
     Active Substance: ZOPICLONE
  121. FLUTIFORM [Concomitant]
     Active Substance: FLUTIFORM
     Indication: Product used for unknown indication
  122. FLUTIFORM [Concomitant]
     Active Substance: FLUTIFORM
     Route: 065
  123. FLUTIFORM [Concomitant]
     Active Substance: FLUTIFORM
     Route: 065
  124. FLUTIFORM [Concomitant]
     Active Substance: FLUTIFORM
  125. SPIRIVA [Concomitant]
     Active Substance: TIOTROPIUM BROMIDE MONOHYDRATE
     Indication: Product used for unknown indication
  126. SPIRIVA [Concomitant]
     Active Substance: TIOTROPIUM BROMIDE MONOHYDRATE
     Route: 065
  127. SPIRIVA [Concomitant]
     Active Substance: TIOTROPIUM BROMIDE MONOHYDRATE
     Route: 065
  128. SPIRIVA [Concomitant]
     Active Substance: TIOTROPIUM BROMIDE MONOHYDRATE
  129. IBUPROFEN [Concomitant]
     Active Substance: IBUPROFEN
     Indication: Product used for unknown indication
  130. IBUPROFEN [Concomitant]
     Active Substance: IBUPROFEN
     Route: 065
  131. IBUPROFEN [Concomitant]
     Active Substance: IBUPROFEN
     Route: 065
  132. IBUPROFEN [Concomitant]
     Active Substance: IBUPROFEN

REACTIONS (11)
  - Death [Fatal]
  - Neuroendocrine tumour of the lung metastatic [Unknown]
  - Bladder transitional cell carcinoma [Unknown]
  - Rheumatoid arthritis [Recovered/Resolved]
  - Vascular encephalopathy [Unknown]
  - Dyspnoea exertional [Not Recovered/Not Resolved]
  - Vertebral foraminal stenosis [Not Recovered/Not Resolved]
  - Nail dystrophy [Unknown]
  - Pulmonary mass [Not Recovered/Not Resolved]
  - Noninfective gingivitis [Unknown]
  - Cough [Unknown]

NARRATIVE: CASE EVENT DATE: 20201101
